FAERS Safety Report 9321372 (Version 2)
Quarter: 2013Q3

REPORT INFORMATION
  Report Type: Spontaneous
  Country: US (occurrence: US)
  Receive Date: 20130531
  Receipt Date: 20130930
  Transmission Date: 20140515
  Serious: Yes (Disabling)
  Sender: FDA-Public Use
  Company Number: US-PFIZER INC-2013164859

PATIENT
  Age: 45 Year
  Sex: Male
  Weight: 104.31 kg

DRUGS (2)
  1. DILANTIN [Suspect]
     Indication: EPILEPSY
     Dosage: 500 MG (TOTAL DAILY DOSE)
     Route: 048
     Dates: start: 1974
  2. KEPPRA [Concomitant]
     Indication: EPILEPSY
     Dosage: UNK

REACTIONS (2)
  - Back injury [Unknown]
  - Intervertebral disc injury [Unknown]
